FAERS Safety Report 10560199 (Version 1)
Quarter: 2014Q4

REPORT INFORMATION
  Report Type: Spontaneous
  Country: US (occurrence: None)
  Receive Date: 20141031
  Receipt Date: 20141031
  Transmission Date: 20150529
  Serious: No
  Sender: FDA-Public Use
  Company Number: None

PATIENT
  Age: 28 Year
  Sex: Female
  Weight: 47.63 kg

DRUGS (1)
  1. AMPHETAMINE SALTS [Suspect]
     Active Substance: AMPHETAMINE ASPARTATE\AMPHETAMINE SULFATE\DEXTROAMPHETAMINE SACCHARATE\DEXTROAMPHETAMINE SULFATE
     Indication: ATTENTION DEFICIT/HYPERACTIVITY DISORDER
     Dosage: HALF A PILL TO ONE PILL TWICE DAILY TAKEN BY MOUTH
     Route: 048
     Dates: start: 20141001, end: 20141030

REACTIONS (10)
  - Gastrointestinal disorder [None]
  - Abdominal discomfort [None]
  - Muscle spasms [None]
  - Drug effect decreased [None]
  - Product substitution issue [None]
  - Fatigue [None]
  - Headache [None]
  - Panic attack [None]
  - Product quality issue [None]
  - Chest pain [None]

NARRATIVE: CASE EVENT DATE: 20141001
